FAERS Safety Report 5567806-7 (Version None)
Quarter: 2007Q4

REPORT INFORMATION
  Report Type: 
  Country: None (occurrence: None)
  Receive Date: 20071219
  Receipt Date: 20071212
  Transmission Date: 20080405
  Serious: Yes (Hospitalization, Other)
  Sender: FDA-Public Use
  Company Number: US-ALLERGAN-0713724US

PATIENT
  Sex: Male

DRUGS (4)
  1. ACULAR [Suspect]
     Indication: PROPHYLAXIS
     Dosage: UNK, QID
     Route: 047
  2. ACULAR [Suspect]
     Indication: POSTOPERATIVE CARE
  3. DEXAMETHASONE W/NEOMYCIN,POLYMYXIN B [Concomitant]
     Indication: POSTOPERATIVE CARE
     Dosage: UNK, QID
     Route: 047
  4. PREDNISOLONE ACETATE, 1.0% [Concomitant]
     Dosage: UNK, QID
     Route: 047

REACTIONS (12)
  - ANTERIOR CHAMBER CELL [None]
  - ANTERIOR CHAMBER FLARE [None]
  - CORNEAL OEDEMA [None]
  - CYCLITIC MEMBRANE [None]
  - EYE PAIN [None]
  - HYPOPYON [None]
  - INTRAOCULAR PRESSURE INCREASED [None]
  - IRIS BOMBE [None]
  - OCULAR HYPERAEMIA [None]
  - VISUAL ACUITY REDUCED [None]
  - VITRITIS [None]
  - WOUND DEHISCENCE [None]
